FAERS Safety Report 4802666-0 (Version None)
Quarter: 2005Q4

REPORT INFORMATION
  Report Type: 
  Country: None (occurrence: None)
  Receive Date: 20051014
  Receipt Date: 20050716
  Transmission Date: 20060501
  Serious: Yes (Hospitalization)
  Sender: FDA-Public Use
  Company Number: 2005095315

PATIENT
  Age: 66 Year
  Sex: Female
  Weight: 68.9467 kg

DRUGS (1)
  1. NEURONTIN [Suspect]
     Indication: NEUROPATHY PERIPHERAL
     Dosage: 5400 MG (1800 MG, 3 IN 1 D) ORAL
     Route: 048

REACTIONS (3)
  - GLYCOSYLATED HAEMOGLOBIN INCREASED [None]
  - INTENTIONAL DRUG MISUSE [None]
  - PNEUMONIA [None]
